FAERS Safety Report 5422493-3 (Version None)
Quarter: 2007Q3

REPORT INFORMATION
  Report Type: 
  Country: None (occurrence: None)
  Receive Date: 20070822
  Receipt Date: 20070821
  Transmission Date: 20080115
  Serious: Yes (Other)
  Sender: FDA-Public Use
  Company Number: A0671393A

PATIENT
  Age: 46 Year
  Sex: Female

DRUGS (2)
  1. ALLI [Suspect]
     Indication: WEIGHT LOSS DIET
     Route: 048
     Dates: start: 20070101, end: 20070820
  2. ZOLOFT [Concomitant]

REACTIONS (4)
  - ASTHENIA [None]
  - HYPOGLYCAEMIA [None]
  - RECTAL DISCHARGE [None]
  - TREMOR [None]
